FAERS Safety Report 7655313-7 (Version None)
Quarter: 2011Q3

REPORT INFORMATION
  Report Type: 
  Country: None (occurrence: None)
  Receive Date: 20110729
  Receipt Date: 20110718
  Transmission Date: 20111222
  Serious: Yes (Life-Threatening, Hospitalization)
  Sender: FDA-Public Use
  Company Number: GB-DEXPHARM-20111044

PATIENT
  Age: 57 Year
  Sex: Male

DRUGS (11)
  1. LATEX [Suspect]
  2. VENTOLIN HFA [Concomitant]
  3. TEICOPLANIN [Suspect]
     Indication: PROPHYLAXIS
     Dosage: 400 MG, INTRAVENOUS
     Route: 042
     Dates: start: 20110620
  4. FENTANYL [Suspect]
     Dosage: 1 MG, INTRAVENOUS
     Route: 042
     Dates: start: 20110620
  5. PROPOFOL [Suspect]
     Dosage: 200 MG, INTRAVENOUS
     Route: 042
     Dates: start: 20110620
  6. LANSOPRAZOLE [Concomitant]
  7. DEXAMETHASONE [Suspect]
     Indication: PROPHYLAXIS
     Dosage: 8 MG, INTRAVENOUS
     Route: 042
  8. LEVOBUPIVACAINE [Suspect]
     Indication: NERVE BLOCK
     Dosage: 150 MG, INTRAVENOUS
     Route: 042
     Dates: start: 20110620
  9. PREDNISOLONE [Concomitant]
  10. GENTAMICIN [Suspect]
     Indication: PROPHYLAXIS
     Dosage: 120 MG, INTRAVENOUS
     Route: 042
  11. CHLORHEXIDINE GLUCONATE [Suspect]
     Dosage: TOPICAL
     Route: 061
     Dates: start: 20110620

REACTIONS (1)
  - ANAPHYLACTIC REACTION [None]
